FAERS Safety Report 6672498-X (Version None)
Quarter: 2010Q2

REPORT INFORMATION
  Report Type: 
  Country: None (occurrence: None)
  Receive Date: 20100408
  Receipt Date: 20100329
  Transmission Date: 20101027
  Serious: Yes (Other)
  Sender: FDA-Public Use
  Company Number: US-BAYER-201018024NA

PATIENT
  Age: 79 Year
  Sex: Male

DRUGS (6)
  1. MAGNEVIST [Suspect]
     Indication: IMAGING PROCEDURE
     Dates: start: 20010402, end: 20010402
  2. MAGNEVIST [Suspect]
     Dates: start: 20020711, end: 20020711
  3. OMNISCAN [Suspect]
     Indication: NUCLEAR MAGNETIC RESONANCE IMAGING
     Dates: start: 20041213, end: 20041213
  4. OMNISCAN [Suspect]
     Dates: start: 20050119, end: 20050119
  5. OMNISCAN [Suspect]
     Dates: start: 20050517, end: 20050517
  6. OMNISCAN [Suspect]
     Dates: start: 20050913, end: 20050913

REACTIONS (14)
  - DEFORMITY [None]
  - DRY SKIN [None]
  - EXTREMITY CONTRACTURE [None]
  - GENERAL PHYSICAL HEALTH DETERIORATION [None]
  - HYPOAESTHESIA [None]
  - JOINT CONTRACTURE [None]
  - JOINT RANGE OF MOTION DECREASED [None]
  - JOINT STIFFNESS [None]
  - JOINT SWELLING [None]
  - NEPHROGENIC SYSTEMIC FIBROSIS [None]
  - PAIN [None]
  - SCAR [None]
  - SKIN EXFOLIATION [None]
  - SKIN HYPERTROPHY [None]
